FAERS Safety Report 4365510-4 (Version None)
Quarter: 2004Q2

REPORT INFORMATION
  Report Type: 
  Country: None (occurrence: None)
  Receive Date: 20040526
  Receipt Date: 20040518
  Transmission Date: 20050107
  Serious: Yes (Hospitalization)
  Sender: FDA-Public Use
  Company Number: FR-BRISTOL-MYERS SQUIBB COMPANY-12590964

PATIENT
  Age: 89 Year
  Sex: Female

DRUGS (5)
  1. COUMADIN [Suspect]
     Indication: ATRIAL FIBRILLATION
     Route: 048
     Dates: end: 20040109
  2. ACETYLCYSTEINE [Interacting]
     Dates: start: 20040107, end: 20040111
  3. MOTILIUM [Interacting]
     Dates: start: 20040107, end: 20040111
  4. ULTRA-LEVURE [Interacting]
     Dates: start: 20040107, end: 20040111
  5. TAVANIC [Interacting]
     Dates: start: 20040107, end: 20040111

REACTIONS (3)
  - COAGULATION TIME PROLONGED [None]
  - DRUG INTERACTION [None]
  - HAEMATOMA [None]
